FAERS Safety Report 25909911 (Version 2)
Quarter: 2025Q4

REPORT INFORMATION
  Report Type: Report from Study
  Country: US (occurrence: US)
  Receive Date: 20251012
  Receipt Date: 20251022
  Transmission Date: 20260117
  Serious: Yes (Hospitalization, Other)
  Sender: SANOFI AVENTIS
  Company Number: US-SA-2025SA301299

PATIENT
  Age: 49 Year
  Sex: Male
  Weight: 77.27 kg

DRUGS (1)
  1. DUPILUMAB [Suspect]
     Active Substance: DUPILUMAB
     Dosage: 600 MG, 1X
     Route: 058
     Dates: start: 20250924, end: 20250924

REACTIONS (7)
  - Periorbital cellulitis [Unknown]
  - Eye pain [Not Recovered/Not Resolved]
  - Diplopia [Recovered/Resolved]
  - Periorbital inflammation [Unknown]
  - Conjunctivitis [Not Recovered/Not Resolved]
  - Arthralgia [Unknown]
  - Product use in unapproved indication [Unknown]

NARRATIVE: CASE EVENT DATE: 20250101
